FAERS Safety Report 8578033-3 (Version None)
Quarter: 2012Q3

REPORT INFORMATION
  Report Type: 
  Country: None (occurrence: None)
  Receive Date: 20120726
  Receipt Date: 20120716
  Transmission Date: 20120928
  Serious: Yes (Death, Life-Threatening, Hospitalization)
  Sender: FDA-Public Use
  Company Number: DSA_58574_2012

PATIENT
  Age: 48 Year
  Sex: Male

DRUGS (12)
  1. BUPROPION HYDROCHLORIDE [Suspect]
     Indication: PRODUCT USED FOR UNKNOWN INDICATION
     Dosage: SEE IMAGE
     Route: 048
     Dates: start: 20120130, end: 20120315
  2. BUPROPION HYDROCHLORIDE [Suspect]
     Indication: PRODUCT USED FOR UNKNOWN INDICATION
     Dosage: SEE IMAGE
     Route: 048
     Dates: start: 20120114, end: 20120129
  3. BUPROPION HYDROCHLORIDE [Suspect]
     Indication: PRODUCT USED FOR UNKNOWN INDICATION
     Dosage: SEE IMAGE
     Route: 048
     Dates: start: 20120316, end: 20120404
  4. BUPROPION HYDROCHLORIDE [Suspect]
     Indication: PRODUCT USED FOR UNKNOWN INDICATION
     Dosage: SEE IMAGE
     Route: 048
     Dates: start: 20120405, end: 20120409
  5. BUPROPION HYDROCHLORIDE [Suspect]
     Indication: PRODUCT USED FOR UNKNOWN INDICATION
     Dosage: SEE IMAGE
     Route: 048
     Dates: start: 20120410, end: 20120414
  6. RISPERDAL [Suspect]
     Indication: PRODUCT USED FOR UNKNOWN INDICATION
     Dosage: (DF ORAL)
     Route: 048
     Dates: start: 20120215, end: 20120414
  7. RAMIPRIL [Concomitant]
  8. EUNERPAN (EUNERPAN-MELPERONE [Suspect]
     Indication: SUICIDAL IDEATION
     Dosage: (50 MG ORAL), (AS NEEDED: 100 MG TWICE AND 50 MG ONCE ORAL)
     Route: 048
     Dates: start: 20120414, end: 20120414
  9. EUNERPAN (EUNERPAN-MELPERONE [Suspect]
     Indication: ANXIETY
     Dosage: (50 MG ORAL), (AS NEEDED: 100 MG TWICE AND 50 MG ONCE ORAL)
     Route: 048
     Dates: start: 20120414, end: 20120414
  10. EUNERPAN (EUNERPAN-MELPERONE [Suspect]
     Indication: SLEEP DISORDER
     Dosage: (50 MG ORAL), (AS NEEDED: 100 MG TWICE AND 50 MG ONCE ORAL)
     Route: 048
     Dates: start: 20120414, end: 20120414
  11. EUNERPAN (EUNERPAN-MELPERONE [Suspect]
     Indication: MAJOR DEPRESSION
     Dosage: (50 MG ORAL), (AS NEEDED: 100 MG TWICE AND 50 MG ONCE ORAL)
     Route: 048
     Dates: start: 20120414, end: 20120414
  12. BISOPROLOL FUMARATE [Concomitant]

REACTIONS (13)
  - MYOCARDIAL INFARCTION [None]
  - RESTLESSNESS [None]
  - SCAR [None]
  - VOMITING [None]
  - POTENTIATING DRUG INTERACTION [None]
  - SLEEP DISORDER [None]
  - SUICIDAL IDEATION [None]
  - MYOCARDIAL ISCHAEMIA [None]
  - ANXIETY [None]
  - MAJOR DEPRESSION [None]
  - DYSSTASIA [None]
  - SPEECH DISORDER [None]
  - ARRHYTHMIA [None]
